FAERS Safety Report 8329272-8 (Version None)
Quarter: 2012Q2

REPORT INFORMATION
  Report Type: 
  Country: None (occurrence: None)
  Receive Date: 20120502
  Receipt Date: 20120326
  Transmission Date: 20120825
  Serious: No
  Sender: FDA-Public Use
  Company Number: US-ASTRAZENECA-2012SE20016

PATIENT
  Age: 73 Year
  Sex: Female
  Weight: 68 kg

DRUGS (5)
  1. FASLODEX [Suspect]
     Indication: BREAST CANCER
     Route: 030
     Dates: start: 20120201
  2. CALCIUM [Concomitant]
  3. VITAMIN D [Concomitant]
  4. VITAMIN TAB [Concomitant]
  5. GABAPENTIN [Concomitant]

REACTIONS (1)
  - URINARY INCONTINENCE [None]
